FAERS Safety Report 4980395-0 (Version None)
Quarter: 2006Q2

REPORT INFORMATION
  Report Type: 
  Country: None (occurrence: None)
  Receive Date: 20060424
  Receipt Date: 20060420
  Transmission Date: 20061013
  Serious: Yes (Death)
  Sender: FDA-Public Use
  Company Number: US-NOVOPROD-252574

PATIENT
  Age: 25 Year
  Sex: Male

DRUGS (1)
  1. NOVOSEVEN [Suspect]
     Indication: HAEMORRHAGE INTRACRANIAL
     Dosage: 226.8 MG TOTAL DOSE RECEIVED
     Route: 042
     Dates: start: 20060328, end: 20060404

REACTIONS (1)
  - CONCOMITANT DISEASE PROGRESSION [None]
